FAERS Safety Report 7703854-6 (Version None)
Quarter: 2011Q3

REPORT INFORMATION
  Report Type: 
  Country: None (occurrence: None)
  Receive Date: 20110823
  Receipt Date: 20110812
  Transmission Date: 20111222
  Serious: Yes (Death, Hospitalization, Other)
  Sender: FDA-Public Use
  Company Number: US-BAYER-2011-024073

PATIENT
  Age: 22 Year
  Sex: Female
  Weight: 58.957 kg

DRUGS (3)
  1. YAZ [Suspect]
     Dosage: UNK
     Dates: start: 20100915, end: 20101006
  2. DROSPIRENONE AND ETHINYL ESTRADIOL [Suspect]
     Dosage: UNK
     Dates: start: 20090710, end: 20100915
  3. YAZ [Suspect]
     Dosage: UNK
     Dates: start: 20090710, end: 20100622

REACTIONS (9)
  - CARDIOGENIC SHOCK [None]
  - ACUTE LUNG INJURY [None]
  - RESPIRATORY FAILURE [None]
  - PULMONARY EMBOLISM [None]
  - PULMONARY HYPERTENSION [None]
  - HYPERKALAEMIA [None]
  - RESPIRATORY DISTRESS [None]
  - PULMONARY INFARCTION [None]
  - PAIN [None]
